FAERS Safety Report 7236496-X (Version None)
Quarter: 2011Q1

REPORT INFORMATION
  Report Type: 
  Country: None (occurrence: None)
  Receive Date: 20110120
  Receipt Date: 20110117
  Transmission Date: 20110831
  Serious: Yes (Other)
  Sender: FDA-Public Use
  Company Number: CA-ABBOTT-10P-028-0683788-00

PATIENT
  Sex: Female
  Weight: 77.18 kg

DRUGS (2)
  1. FERROUS GLUCONATE [Concomitant]
     Indication: MINERAL SUPPLEMENTATION
     Route: 048
  2. HUMIRA [Suspect]
     Indication: CROHN'S DISEASE
     Route: 058
     Dates: start: 20080208, end: 20101112

REACTIONS (3)
  - GASTROINTESTINAL DISORDER [None]
  - ABSCESS [None]
  - POLYP [None]
